FAERS Safety Report 18157563 (Version 1)
Quarter: 2020Q3

REPORT INFORMATION
  Report Type: Spontaneous
  Country: MX (occurrence: MX)
  Receive Date: 20200817
  Receipt Date: 20200817
  Transmission Date: 20201103
  Serious: Yes (Other)
  Sender: FDA-Public Use
  Company Number: MX-ELI_LILLY_AND_COMPANY-MX202008004678

PATIENT
  Sex: Male
  Weight: 73 kg

DRUGS (3)
  1. ZYPREXA ZYDIS [Suspect]
     Active Substance: OLANZAPINE
     Dosage: 2.5 MG, DAILY
     Route: 048
  2. LITHIUM. [Concomitant]
     Active Substance: LITHIUM
     Indication: PRODUCT USED FOR UNKNOWN INDICATION
     Dosage: 2 DOSAGE FORM, DAILY
  3. ZYPREXA ZYDIS [Suspect]
     Active Substance: OLANZAPINE
     Indication: PRODUCT USED FOR UNKNOWN INDICATION
     Dosage: 5 MG, DAILY (NIGHT)
     Route: 048

REACTIONS (10)
  - Sleep disorder due to general medical condition, insomnia type [Unknown]
  - Seborrhoeic dermatitis [Not Recovered/Not Resolved]
  - Increased appetite [Unknown]
  - Suicidal ideation [Unknown]
  - Tremor [Unknown]
  - Weight increased [Unknown]
  - Off label use [Unknown]
  - Fatigue [Unknown]
  - Depression [Unknown]
  - Somnolence [Unknown]

NARRATIVE: CASE EVENT DATE: 2018
